FAERS Safety Report 24797557 (Version 1)
Quarter: 2025Q1

REPORT INFORMATION
  Report Type: Spontaneous
  Country: DE (occurrence: DE)
  Receive Date: 20250102
  Receipt Date: 20250102
  Transmission Date: 20250409
  Serious: Yes (Death, Other)
  Sender: CELLTRION
  Company Number: None

PATIENT

DRUGS (5)
  1. HERZUMA [Suspect]
     Active Substance: TRASTUZUMAB-PKRB
     Indication: Breast cancer
     Dates: start: 20240409, end: 20240611
  2. HERZUMA [Suspect]
     Active Substance: TRASTUZUMAB-PKRB
     Dates: start: 20240430
  3. HERZUMA [Suspect]
     Active Substance: TRASTUZUMAB-PKRB
     Dates: start: 20240521
  4. HERZUMA [Suspect]
     Active Substance: TRASTUZUMAB-PKRB
     Dates: start: 20240611
  5. PACLITAXEL [Suspect]
     Active Substance: PACLITAXEL
     Indication: Product used for unknown indication
     Dosage: 300 MG, 1/WEEK
     Dates: start: 20240409, end: 20240611

REACTIONS (1)
  - Right ventricular failure [Fatal]

NARRATIVE: CASE EVENT DATE: 20240620
